FAERS Safety Report 6522723-0 (Version None)
Quarter: 2009Q4

REPORT INFORMATION
  Report Type: 
  Country: None (occurrence: None)
  Receive Date: 20091230
  Receipt Date: 20091221
  Transmission Date: 20100525
  Serious: Yes (Hospitalization, Disabling, Other)
  Sender: FDA-Public Use
  Company Number: US-MPIJNJ-2009-05268

PATIENT
  Sex: Male

DRUGS (10)
  1. VELCADE [Suspect]
     Indication: MULTIPLE MYELOMA
     Dosage: UNK
     Dates: end: 20090821
  2. REVLIMID [Suspect]
     Indication: MULTIPLE MYELOMA
     Dosage: 10 MG, QD
     Route: 048
     Dates: start: 20090301, end: 20090827
  3. REVLIMID [Suspect]
     Dosage: 25 MG, QD
     Route: 048
     Dates: start: 20070501, end: 20090301
  4. DEXAMETHASONE [Concomitant]
     Indication: MULTIPLE MYELOMA
     Dosage: UNK
  5. ZOMETA [Concomitant]
     Indication: MULTIPLE MYELOMA
  6. PRILOSEC [Concomitant]
     Indication: DRUG USE FOR UNKNOWN INDICATION
     Dosage: UNK
  7. ADVIL LIQUI-GELS [Concomitant]
     Indication: DRUG USE FOR UNKNOWN INDICATION
     Dosage: UNK
  8. DARVOCET                           /00220901/ [Concomitant]
     Indication: DRUG USE FOR UNKNOWN INDICATION
     Dosage: UNK
  9. SENOKOT                            /00142201/ [Concomitant]
     Indication: DRUG USE FOR UNKNOWN INDICATION
     Dosage: UNK
  10. GABAPENTIN [Concomitant]
     Indication: DRUG USE FOR UNKNOWN INDICATION
     Dosage: UNK

REACTIONS (24)
  - ABDOMINAL PAIN [None]
  - APLASTIC ANAEMIA [None]
  - ASTHENIA [None]
  - BONE MARROW FAILURE [None]
  - DECREASED APPETITE [None]
  - DEHYDRATION [None]
  - DISEASE RECURRENCE [None]
  - DRUG INEFFECTIVE [None]
  - DYSPEPSIA [None]
  - FAILURE TO THRIVE [None]
  - FATIGUE [None]
  - HYPOAESTHESIA [None]
  - HYPOPHAGIA [None]
  - MALIGNANT NEOPLASM PROGRESSION [None]
  - MOBILITY DECREASED [None]
  - MULTIPLE MYELOMA [None]
  - NAUSEA [None]
  - NEUROPATHY PERIPHERAL [None]
  - NEUTROPENIA [None]
  - PROTEIN TOTAL INCREASED [None]
  - RENAL FAILURE [None]
  - RESPIRATORY TRACT INFECTION [None]
  - THROMBOCYTOPENIA [None]
  - WHITE BLOOD CELL COUNT DECREASED [None]
